FAERS Safety Report 8838699 (Version 1)
Quarter: 2012Q4

REPORT INFORMATION
  Report Type: 
  Country: US (occurrence: US)
  Receive Date: 20121012
  Receipt Date: 20121012
  Transmission Date: 20130627
  Serious: No
  Sender: FDA-Public Use
  Company Number: US-ASTRAZENECA-2012SE77436

PATIENT
  Age: 87 Year
  Sex: Male
  Weight: 77.1 kg

DRUGS (3)
  1. SYMBICORT [Suspect]
     Indication: RHINITIS
     Dosage: 160/4.5 MCG AT NIGHT
     Route: 055
     Dates: start: 20121005, end: 20121008
  2. POTASSIUM IODINE [Concomitant]
     Indication: OEDEMA PERIPHERAL
  3. POTASSIUM IODINE [Concomitant]
     Indication: OEDEMA PERIPHERAL

REACTIONS (4)
  - Malaise [Unknown]
  - Oedema peripheral [Unknown]
  - Feeling abnormal [Unknown]
  - Off label use [Unknown]
